FAERS Safety Report 7805942-2 (Version None)
Quarter: 2011Q4

REPORT INFORMATION
  Report Type: 
  Country: None (occurrence: None)
  Receive Date: 20111007
  Receipt Date: 20111007
  Transmission Date: 20120403
  Serious: Yes (Hospitalization)
  Sender: FDA-Public Use
  Company Number: None

PATIENT
  Sex: Female
  Weight: 104 kg

DRUGS (2)
  1. CARBOPLATIN [Suspect]
     Dosage: 394 MG
     Dates: end: 20110922
  2. TAXOTERE [Suspect]
     Dosage: 160 MG
     Dates: start: 20110922

REACTIONS (8)
  - PYREXIA [None]
  - DIARRHOEA [None]
  - NEUTROPHIL COUNT DECREASED [None]
  - ANAEMIA [None]
  - ASTHENIA [None]
  - HYPOMAGNESAEMIA [None]
  - HYPOKALAEMIA [None]
  - INFECTION [None]
